FAERS Safety Report 6970028-6 (Version None)
Quarter: 2010Q3

REPORT INFORMATION
  Report Type: 
  Country: None (occurrence: None)
  Receive Date: 20100908
  Receipt Date: 20100831
  Transmission Date: 20110219
  Serious: Yes (Hospitalization)
  Sender: FDA-Public Use
  Company Number: CN-NOVOPROD-313506

PATIENT
  Age: 86 Year
  Sex: Female

DRUGS (11)
  1. NOVOLOG MIX 70/30 [Suspect]
     Indication: TYPE 2 DIABETES MELLITUS
     Dosage: 18 U IN THE MORNING, 12 U AT NOON, 12 U AT NIGHT
     Route: 058
     Dates: start: 20090101, end: 20090601
  2. NOVOLOG MIX 70/30 [Suspect]
     Dosage: 18 U IN THE MORNING, 12 U AT NOON, 12 U AT NIGHT
     Route: 058
     Dates: start: 20090601, end: 20090101
  3. NOVOLIN R [Suspect]
     Indication: TYPE 2 DIABETES MELLITUS
     Dosage: 30 IU IN THE MORNING AND 20 IU AT NIGHT
     Route: 058
     Dates: start: 20090601, end: 20090101
  4. AMLODIPINE [Concomitant]
     Indication: HYPERTENSION
     Dosage: 5 MG, QD
     Route: 048
  5. AMLODIPINE [Concomitant]
     Dosage: UNK
     Dates: start: 20090601
  6. PRAVASTATIN [Concomitant]
     Indication: PRODUCT USED FOR UNKNOWN INDICATION
     Dosage: UNK
     Route: 048
  7. ASPIRIN [Concomitant]
     Indication: PRODUCT USED FOR UNKNOWN INDICATION
     Dosage: UNK
     Route: 048
  8. HERBAL PREPARATION [Concomitant]
     Indication: PRODUCT USED FOR UNKNOWN INDICATION
     Dosage: UNK
     Route: 048
  9. GLIQUIDONE [Concomitant]
     Indication: TYPE 2 DIABETES MELLITUS
     Dosage: 60 MG, TID
  10. ACARBOSE [Concomitant]
     Indication: TYPE 2 DIABETES MELLITUS
     Dosage: 50 MG, TID
     Route: 048
     Dates: start: 20080101, end: 20090101
  11. ACARBOSE [Concomitant]
     Dosage: 100 MG, TID
     Dates: start: 20090101

REACTIONS (2)
  - DRUG HYPERSENSITIVITY [None]
  - RENAL IMPAIRMENT [None]
